FAERS Safety Report 4632214-X (Version None)
Quarter: 2005Q2

REPORT INFORMATION
  Report Type: 
  Country: None (occurrence: None)
  Receive Date: 20050324
  Receipt Date: 20041123
  Transmission Date: 20051028
  Serious: Yes (Other)
  Sender: FDA-Public Use
  Company Number: 15478

PATIENT
  Age: 68 Year
  Sex: Female
  Weight: 77 kg

DRUGS (1)
  1. DILTIAZEM HCL [Suspect]
     Dosage: CONTINUOUS IV D5W
     Route: 042
     Dates: start: 20041121, end: 20041123

REACTIONS (2)
  - INJECTION SITE REACTION [None]
  - IRRITABILITY [None]
